FAERS Safety Report 6464657-6 (Version None)
Quarter: 2009Q4

REPORT INFORMATION
  Report Type: 
  Country: None (occurrence: None)
  Receive Date: 20091201
  Receipt Date: 20091126
  Transmission Date: 20100525
  Serious: Yes (Other)
  Sender: FDA-Public Use
  Company Number: GB-MERCK-0911GBR00114

PATIENT
  Age: 33 Year
  Sex: Female
  Weight: 149 kg

DRUGS (7)
  1. SINGULAIR [Suspect]
     Indication: ASTHMA
     Route: 048
     Dates: start: 20081022, end: 20081108
  2. CETIRIZINE HYDROCHLORIDE [Concomitant]
     Route: 065
  3. OMEPRAZOLE [Concomitant]
     Route: 065
  4. ALBUTEROL [Concomitant]
     Route: 065
  5. FLUTICASONE PROPIONATE AND SALMETEROL XINAFOATE [Concomitant]
     Route: 065
  6. TRAMADOL HYDROCHLORIDE [Concomitant]
     Route: 065
  7. ZOPICLONE [Concomitant]
     Route: 065

REACTIONS (3)
  - DEPRESSION [None]
  - SELF-INJURIOUS IDEATION [None]
  - SLEEP DISORDER [None]
